FAERS Safety Report 4853096-7 (Version None)
Quarter: 2005Q4

REPORT INFORMATION
  Report Type: 
  Country: None (occurrence: None)
  Receive Date: 20051212
  Receipt Date: 20051121
  Transmission Date: 20060501
  Serious: Yes (Hospitalization, Other)
  Sender: FDA-Public Use
  Company Number: US200511002184

PATIENT
  Age: 67 Year
  Sex: Female

DRUGS (3)
  1. FORTEO [Suspect]
     Indication: OSTEOPENIA
     Dates: start: 20050601
  2. FORTEO PEN (250 MCG/ML) (FORTEO PEN 250MCG/ML (3ML)) [Concomitant]
  3. PEN,DISPOSABLE [Concomitant]

REACTIONS (3)
  - CARDIAC FAILURE CONGESTIVE [None]
  - MITRAL VALVE DISEASE [None]
  - PHARMACEUTICAL PRODUCT COMPLAINT [None]
